FAERS Safety Report 4292786-4 (Version None)
Quarter: 2004Q1

REPORT INFORMATION
  Report Type: 
  Country: None (occurrence: None)
  Receive Date: 20040210
  Receipt Date: 20040127
  Transmission Date: 20041129
  Serious: Yes (Other)
  Sender: FDA-Public Use
  Company Number: BR-SHR-04-020408

PATIENT
  Age: 45 Year
  Sex: Female

DRUGS (2)
  1. MIRENA [Suspect]
     Indication: UTERINE LEIOMYOMA
     Dosage: 20 UG/DAY, CONT, INTRA-UTERINE
     Route: 015
     Dates: start: 20021128
  2. ALLERGY MEDICATION [Concomitant]

REACTIONS (8)
  - ABDOMINAL PAIN UPPER [None]
  - BREAST DISCOMFORT [None]
  - CYST [None]
  - DYSMENORRHOEA [None]
  - LYMPHANGIOMA [None]
  - PANCREATIC CYST [None]
  - PREMENSTRUAL SYNDROME [None]
  - VAGINAL HAEMORRHAGE [None]
